FAERS Safety Report 15203494 (Version 2)
Quarter: 2019Q1

REPORT INFORMATION
  Report Type: Spontaneous
  Country: US (occurrence: US)
  Receive Date: 20180726
  Receipt Date: 20190124
  Transmission Date: 20190417
  Serious: Yes (Hospitalization)
  Sender: FDA-Public Use
  Company Number: US-VIFOR (INTERNATIONAL) INC.-VIT-2018-07343

PATIENT
  Age: 88 Year
  Sex: Male

DRUGS (12)
  1. LEVOXYL [Concomitant]
     Active Substance: LEVOTHYROXINE SODIUM
  2. ASPIRIN LOW DOSE [Concomitant]
     Active Substance: ASPIRIN
  3. VITAMIN D3 [Concomitant]
     Active Substance: CHOLECALCIFEROL
  4. NAMENDA [Concomitant]
     Active Substance: MEMANTINE HYDROCHLORIDE
  5. MULTIVITAL [Concomitant]
  6. VITAMIN E ACETATE [Concomitant]
     Active Substance: .ALPHA.-TOCOPHEROL ACETATE
  7. METOPROLOL TARTRATE. [Concomitant]
     Active Substance: METOPROLOL TARTRATE
  8. VITAMIN C [Concomitant]
     Active Substance: ASCORBIC ACID
  9. SODIUM POLYSTYRENE SULFONATE. [Concomitant]
     Active Substance: SODIUM POLYSTYRENE SULFONATE
  10. SIMVASTATIN. [Concomitant]
     Active Substance: SIMVASTATIN
  11. VELTASSA [Suspect]
     Active Substance: PATIROMER
     Indication: HYPERKALAEMIA
     Route: 048
     Dates: start: 20170602, end: 2018
  12. CALCIUM + D3 [Concomitant]
     Active Substance: CALCIUM\CHOLECALCIFEROL

REACTIONS (3)
  - Aortic aneurysm [Unknown]
  - Blood potassium increased [Unknown]
  - Adhesion [Unknown]

NARRATIVE: CASE EVENT DATE: 201807
